FAERS Safety Report 11245454 (Version 1)
Quarter: 2015Q3

REPORT INFORMATION
  Report Type: Spontaneous
  Country: US (occurrence: US)
  Receive Date: 20150707
  Receipt Date: 20150707
  Transmission Date: 20151125
  Serious: No
  Sender: FDA-Public Use
  Company Number: US-009507513-1506USA010228

PATIENT
  Age: 31 Year
  Sex: Female
  Weight: 92.63 kg

DRUGS (1)
  1. NUVARING [Suspect]
     Active Substance: ETHINYL ESTRADIOL\ETONOGESTREL
     Indication: MENSTRUAL CYCLE MANAGEMENT
     Dosage: 3 IN 1 WEEKS OUT
     Route: 067
     Dates: start: 20150410

REACTIONS (4)
  - Incorrect drug administration duration [Unknown]
  - Wrong technique in product usage process [Unknown]
  - Polymenorrhoea [Unknown]
  - Product use issue [Unknown]

NARRATIVE: CASE EVENT DATE: 20150410
